FAERS Safety Report 23074542 (Version 1)
Quarter: 2023Q4

REPORT INFORMATION
  Report Type: Spontaneous
  Country: US (occurrence: US)
  Receive Date: 20231017
  Receipt Date: 20231017
  Transmission Date: 20240110
  Serious: Yes (Hospitalization)
  Sender: FDA-Public Use
  Company Number: US-AMNEAL PHARMACEUTICALS-2023-AMRX-03591

PATIENT
  Age: 15 Year
  Sex: Female

DRUGS (1)
  1. BUPROPION HYDROCHLORIDE [Suspect]
     Active Substance: BUPROPION HYDROCHLORIDE
     Indication: Product used for unknown indication
     Dosage: 24-133 MG/KG
     Route: 065

REACTIONS (5)
  - Overdose [Unknown]
  - Acidosis [Unknown]
  - Generalised tonic-clonic seizure [Unknown]
  - Vomiting [Unknown]
  - Tachycardia [Unknown]
